FAERS Safety Report 8788500 (Version 1)
Quarter: 2012Q4

REPORT INFORMATION
  Report Type: 
  Country: US (occurrence: US)
  Receive Date: 20120914
  Receipt Date: 20120914
  Transmission Date: 20130627
  Serious: No
  Sender: FDA-Public Use
  Company Number: US-VERTEX PHARMACEUTICAL INC.-AE-2012-009859

PATIENT
  Age: 52 None
  Sex: Male
  Weight: 209.52 kg

DRUGS (8)
  1. VX-950 [Suspect]
     Indication: HEPATITIS C
     Dosage: 750 mg, tid
     Route: 048
     Dates: start: 201206
  2. RIBASPHERE [Concomitant]
     Indication: HEPATITIS C
     Dosage: UNK
     Route: 048
     Dates: start: 201206
  3. PEGASYS [Concomitant]
     Indication: HEPATITIS C
     Dosage: 180 ?g, UNK
     Route: 058
     Dates: start: 201206
  4. CITALOPRAM [Concomitant]
     Dosage: 10 mg, qd
  5. RANITIDINE [Concomitant]
     Dosage: 150 mg, bid
     Route: 048
  6. BUPROPION                          /00700502/ [Concomitant]
     Dosage: 150 mg, bid
  7. LEVOTHYROXINE [Concomitant]
     Dosage: 125 ?g, qd
     Route: 048
  8. METOPROLOL SUCCINATE [Concomitant]
     Dosage: 50 mg, qd
     Route: 048

REACTIONS (3)
  - Epistaxis [Unknown]
  - Dyspnoea [Unknown]
  - Fatigue [Unknown]
